FAERS Safety Report 6617010-6 (Version None)
Quarter: 2010Q1

REPORT INFORMATION
  Report Type: 
  Country: None (occurrence: None)
  Receive Date: 20100302
  Receipt Date: 20100222
  Transmission Date: 20100710
  Serious: Yes (Other)
  Sender: FDA-Public Use
  Company Number: 2010JP001103

PATIENT
  Age: 29 Year
  Sex: Female

DRUGS (1)
  1. PROGRAF [Suspect]
     Indication: STEM CELL TRANSPLANT
     Dosage: UNK, UNKNOWN

REACTIONS (3)
  - APLASIA PURE RED CELL [None]
  - EVANS SYNDROME [None]
  - VIRAL INFECTION [None]
